FAERS Safety Report 17066026 (Version 4)
Quarter: 2020Q2

REPORT INFORMATION
  Report Type: Report from Study
  Country: CA (occurrence: CA)
  Receive Date: 20191122
  Receipt Date: 20200417
  Transmission Date: 20200713
  Serious: Yes (Other)
  Sender: FDA-Public Use
  Company Number: CA-JNJFOC-20190324649

PATIENT
  Age: 29 Year
  Sex: Male
  Weight: 62 kg

DRUGS (1)
  1. REMICADE [Suspect]
     Active Substance: INFLIXIMAB
     Indication: CROHN^S DISEASE
     Dosage: 10 MG/KG
     Route: 042
     Dates: start: 20060620

REACTIONS (4)
  - Crohn^s disease [Recovering/Resolving]
  - Lip neoplasm [Recovered/Resolved]
  - Subcutaneous abscess [Recovered/Resolved]
  - Poor quality sleep [Unknown]

NARRATIVE: CASE EVENT DATE: 2019
